FAERS Safety Report 8675886 (Version 3)
Quarter: 2013Q1

REPORT INFORMATION
  Report Type: Spontaneous
  Country: US (occurrence: US)
  Receive Date: 20120720
  Receipt Date: 20130123
  Transmission Date: 20140127
  Serious: Yes (Hospitalization)
  Sender: FDA-Public Use
  Company Number: US-ELI_LILLY_AND_COMPANY-US201207002971

PATIENT
  Sex: Male
  Weight: 94.5 kg

DRUGS (15)
  1. HUMULIN NPH [Suspect]
     Dosage: 10 U, BID
  2. HUMULIN NPH [Suspect]
     Dosage: 11 U, EACH EVENING
  3. HUMALOG LISPRO [Suspect]
     Indication: DIABETES MELLITUS
     Dosage: 10 U, BID
  4. HUMALOG LISPRO [Suspect]
     Dosage: 11 U, EACH EVENING
  5. LANTUS [Concomitant]
  6. VITAMIN D [Concomitant]
  7. VITAMIN E [Concomitant]
  8. NORTRIPTYLINE [Concomitant]
  9. GABAPENTIN [Concomitant]
  10. VITAMIN B [Concomitant]
  11. SIMVASTATIN [Concomitant]
  12. NORVASC [Concomitant]
  13. VITAMIN C [Concomitant]
  14. ACIPHEX [Concomitant]
  15. LOSARTAN + HIDROCLOROTIAZIDA [Concomitant]

REACTIONS (8)
  - Blood glucose increased [Unknown]
  - Transient ischaemic attack [Unknown]
  - Diabetic neuropathy [Not Recovered/Not Resolved]
  - VIIth nerve paralysis [Unknown]
  - Visual impairment [Not Recovered/Not Resolved]
  - Diabetic retinopathy [Unknown]
  - Hypertension [Unknown]
  - Cataract [Unknown]
